FAERS Safety Report 24531352 (Version 1)
Quarter: 2024Q4

REPORT INFORMATION
  Report Type: Spontaneous
  Country: SE (occurrence: SE)
  Receive Date: 20241022
  Receipt Date: 20241022
  Transmission Date: 20250115
  Serious: Yes (Other)
  Sender: NOVO NORDISK
  Company Number: None

PATIENT
  Sex: Female
  Weight: 74 kg

DRUGS (5)
  1. VENLAFAXIN MEDICAL VALLEY [Concomitant]
     Indication: Product used for unknown indication
     Dosage: 150 MG, QD (2 TABLETS EVERY MORNING)
     Route: 048
     Dates: start: 2020
  2. OZEMPIC [Suspect]
     Active Substance: SEMAGLUTIDE
     Dosage: 1 MG, QW(1 INJECTION/WEEK DOSE: LATER DOSE)
     Route: 058
     Dates: start: 20240902
  3. OZEMPIC [Suspect]
     Active Substance: SEMAGLUTIDE
     Indication: Obesity
     Dosage: UNK
     Route: 058
     Dates: start: 202308, end: 20230901
  4. PROGRAF [Concomitant]
     Active Substance: TACROLIMUS
     Indication: Product used for unknown indication
     Dosage: 1 MG, BID (1 CAPSULE MORNING AND EVENING)
     Route: 048
     Dates: start: 20080508
  5. OMEPRAZOL TEVA [OMEPRAZOLE] [Concomitant]
     Indication: Product used for unknown indication
     Dosage: 40 MG, QD (1 CAPSULE IN THE MORNING)
     Dates: start: 20080801

REACTIONS (5)
  - Anxiety [Not Recovered/Not Resolved]
  - Depressed mood [Unknown]
  - Visual impairment [Not Recovered/Not Resolved]
  - Suicidal ideation [Recovered/Resolved]
  - Product use in unapproved indication [Unknown]

NARRATIVE: CASE EVENT DATE: 20230801
